FAERS Safety Report 6938551-8 (Version None)
Quarter: 2010Q3

REPORT INFORMATION
  Report Type: 
  Country: None (occurrence: None)
  Receive Date: 20100824
  Receipt Date: 20100811
  Transmission Date: 20110219
  Serious: Yes (Hospitalization, Other)
  Sender: FDA-Public Use
  Company Number: US-ELI_LILLY_AND_COMPANY-US201008003500

PATIENT
  Sex: Female

DRUGS (7)
  1. FORTEO [Suspect]
     Indication: OSTEOPOROSIS
     Dosage: 20 UG, DAILY (1/D)
     Dates: end: 20091009
  2. FORTEO [Suspect]
     Dosage: 20 UG, DAILY (1/D)
     Dates: start: 20100802
  3. VITAMIN D [Concomitant]
     Dosage: 50000 MG, WEEKLY (1/W)
  4. LISINOPRIL [Concomitant]
     Dosage: 20 MG, DAILY (1/D)
  5. AMLODIPINE [Concomitant]
     Dosage: 5 MG, UNK
  6. HYDROXYCHLOROQUINE [Concomitant]
  7. GEMFIBROZIL [Concomitant]
     Dosage: 600 MG, 2/D

REACTIONS (5)
  - DEVICE BREAKAGE [None]
  - FALL [None]
  - HIP FRACTURE [None]
  - HYPOACUSIS [None]
  - WRIST SURGERY [None]
